FAERS Safety Report 4402896-6 (Version None)
Quarter: 2004Q3

REPORT INFORMATION
  Report Type: 
  Country: None (occurrence: None)
  Receive Date: 20040716
  Receipt Date: 20040704
  Transmission Date: 20050211
  Serious: Yes (Death)
  Sender: FDA-Public Use
  Company Number: 000956

PATIENT
  Age: 77 Year
  Sex: Male

DRUGS (4)
  1. ZEVALIN [Suspect]
     Indication: NON-HODGKIN'S LYMPHOMA
     Dosage: SINGLE, RITUXAN DOSE 1 + 2, INTRAVENOUS
     Route: 042
     Dates: start: 20010101, end: 20010101
  2. ZEVALIN [Suspect]
     Indication: NON-HODGKIN'S LYMPHOMA
     Dosage: SINGLE, RITUXAN DOSE 1 + 2, INTRAVENOUS
     Route: 042
     Dates: start: 20010101, end: 20010101
  3. ZEVALIN [Suspect]
     Indication: NON-HODGKIN'S LYMPHOMA
     Dosage: SINGLE, RITUXAN DOSE 1 + 2, INTRAVENOUS
     Route: 042
     Dates: start: 20010101, end: 20010101
  4. ZEVALIN [Suspect]
     Indication: NON-HODGKIN'S LYMPHOMA
     Dosage: SINGLE, RITUXAN DOSE 1 + 2, INTRAVENOUS
     Route: 042
     Dates: start: 20010101, end: 20010101

REACTIONS (3)
  - BONE MARROW DISORDER [None]
  - MALIGNANT NEOPLASM PROGRESSION [None]
  - NON-HODGKIN'S LYMPHOMA [None]
